FAERS Safety Report 20031831 (Version 1)
Quarter: 2021Q4

REPORT INFORMATION
  Report Type: Spontaneous
  Country: CN (occurrence: CN)
  Receive Date: 20211103
  Receipt Date: 20211103
  Transmission Date: 20220303
  Serious: Yes (Hospitalization)
  Sender: FDA-Public Use
  Company Number: CN-ABBVIE-21K-035-4141602-00

PATIENT
  Age: 29 Year
  Sex: Female
  Weight: 53 kg

DRUGS (7)
  1. VALPROATE SODIUM [Suspect]
     Active Substance: VALPROATE SODIUM
     Indication: Bipolar disorder
     Dosage: BID
     Route: 048
     Dates: start: 20190805, end: 20190812
  2. QUETIAPINE FUMARATE [Suspect]
     Active Substance: QUETIAPINE FUMARATE
     Indication: Bipolar disorder
     Dosage: BID
     Route: 048
     Dates: start: 20190808, end: 20190812
  3. QUETIAPINE FUMARATE [Suspect]
     Active Substance: QUETIAPINE FUMARATE
     Dosage: QD
     Route: 048
     Dates: start: 20190813, end: 20190813
  4. ATROPINE SULFATE [Suspect]
     Active Substance: ATROPINE SULFATE
     Indication: Bipolar disorder
     Route: 042
     Dates: start: 20190812, end: 20190812
  5. ETOMIDATE [Suspect]
     Active Substance: ETOMIDATE
     Indication: Bipolar disorder
     Dosage: QD
     Route: 041
     Dates: start: 20190812, end: 20190812
  6. SUCCINYLCHOLINE CHLORIDE [Suspect]
     Active Substance: SUCCINYLCHOLINE CHLORIDE
     Indication: Bipolar disorder
     Route: 041
     Dates: start: 20190812, end: 20190812
  7. SODIUM CHLORIDE [Concomitant]
     Active Substance: SODIUM CHLORIDE
     Indication: Product used for unknown indication
     Route: 065
     Dates: start: 20190812, end: 20190812

REACTIONS (2)
  - Pruritus [Recovered/Resolved]
  - Rash [Recovered/Resolved]

NARRATIVE: CASE EVENT DATE: 20190813
